FAERS Safety Report 6755961-2 (Version None)
Quarter: 2010Q2

REPORT INFORMATION
  Report Type: 
  Country: None (occurrence: None)
  Receive Date: 20100604
  Receipt Date: 20100524
  Transmission Date: 20101027
  Serious: Yes (Other)
  Sender: FDA-Public Use
  Company Number: PHHY2010FI35992

PATIENT
  Age: 60 Year
  Sex: Female

DRUGS (1)
  1. STALEVO 100 [Suspect]
     Dosage: 100/3 TO 100/4, UNK

REACTIONS (2)
  - PLATELET COUNT DECREASED [None]
  - SURGERY [None]
